FAERS Safety Report 7203606-X (Version None)
Quarter: 2010Q4

REPORT INFORMATION
  Report Type: 
  Country: None (occurrence: None)
  Receive Date: 20101230
  Receipt Date: 20101227
  Transmission Date: 20110411
  Serious: Yes (Death)
  Sender: FDA-Public Use
  Company Number: US-CUBIST-2010S1001403

PATIENT
  Age: 59 Year
  Sex: Female
  Weight: 122 kg

DRUGS (11)
  1. CUBICIN [Suspect]
     Indication: ENDOCARDITIS ENTEROCOCCAL
     Route: 042
     Dates: start: 20100802, end: 20100811
  2. CUBICIN [Suspect]
     Route: 042
     Dates: start: 20100802, end: 20100811
  3. CUBICIN [Suspect]
     Route: 042
     Dates: start: 20100812, end: 20100909
  4. CUBICIN [Suspect]
     Route: 042
     Dates: start: 20100812, end: 20100909
  5. LINEZOLID [Concomitant]
     Indication: URINARY TRACT INFECTION ENTEROCOCCAL
     Route: 042
     Dates: start: 20100810, end: 20100820
  6. GENTAMICIN [Concomitant]
     Indication: ENDOCARDITIS
     Route: 042
     Dates: start: 20100720, end: 20100909
  7. GENTAMICIN [Concomitant]
     Indication: ENTEROCOCCAL INFECTION
     Route: 042
     Dates: start: 20100720, end: 20100909
  8. AZTREONAM [Concomitant]
     Indication: STENOTROPHOMONAS INFECTION
     Route: 042
     Dates: start: 20100810, end: 20100909
  9. CASPOFUNGIN [Concomitant]
     Indication: CANDIDIASIS
     Route: 042
     Dates: start: 20100811, end: 20100819
  10. LEVOFLOXACIN [Concomitant]
     Indication: STENOTROPHOMONAS INFECTION
     Route: 042
     Dates: start: 20100806, end: 20100903
  11. MICAFUNGIN [Concomitant]
     Indication: CANDIDIASIS
     Route: 042
     Dates: start: 20100906, end: 20100909

REACTIONS (3)
  - BACTERIAL INFECTION [None]
  - PATHOGEN RESISTANCE [None]
  - URINARY TRACT INFECTION ENTEROCOCCAL [None]
